FAERS Safety Report 20138683 (Version 3)
Quarter: 2022Q1

REPORT INFORMATION
  Report Type: Spontaneous
  Country: JP (occurrence: JP)
  Receive Date: 20211202
  Receipt Date: 20220221
  Transmission Date: 20220424
  Serious: Yes (Other)
  Sender: FDA-Public Use
  Company Number: JP-Clinigen Group PLC/ Clinigen Healthcare Ltd-JP-CLGN-21-00577

PATIENT
  Age: 3 Year
  Sex: Male

DRUGS (4)
  1. DEXRAZOXANE [Suspect]
     Active Substance: DEXRAZOXANE
     Indication: Chemotherapy cardiotoxicity attenuation
     Route: 041
     Dates: start: 20211019, end: 20211019
  2. DEXRAZOXANE [Suspect]
     Active Substance: DEXRAZOXANE
     Route: 041
     Dates: start: 20211026, end: 20211026
  3. DEXRAZOXANE [Suspect]
     Active Substance: DEXRAZOXANE
     Route: 041
     Dates: start: 20211102, end: 20211102
  4. DEXRAZOXANE [Suspect]
     Active Substance: DEXRAZOXANE
     Route: 042
     Dates: start: 20220107, end: 20220107

REACTIONS (2)
  - Recurrent cancer [Unknown]
  - Off label use [Unknown]
